FAERS Safety Report 19982631 (Version 2)
Quarter: 2022Q1

REPORT INFORMATION
  Report Type: Report from Study
  Country: ES (occurrence: ES)
  Receive Date: 20211021
  Receipt Date: 20220203
  Transmission Date: 20220423
  Serious: Yes (Hospitalization)
  Sender: FDA-Public Use
  Company Number: ES-PFIZER INC-202101367973

PATIENT
  Age: 77 Year
  Sex: Male
  Weight: 65 kg

DRUGS (6)
  1. OXALIPLATIN [Suspect]
     Active Substance: OXALIPLATIN
     Indication: Colorectal cancer metastatic
     Dosage: 151.88 MG, EVERY 2 WEEKS
     Route: 042
     Dates: start: 20210811
  2. FLUOROURACIL [Suspect]
     Active Substance: FLUOROURACIL
     Indication: Colorectal cancer metastatic
     Dosage: 715.2 MG, EVERY 2 WEEKS (IV BOLUS)
     Route: 042
     Dates: start: 20210811
  3. FLUOROURACIL [Suspect]
     Active Substance: FLUOROURACIL
     Dosage: 4291.2 MG, EVERY 2 WEEKS (PUMP INFUSION)
     Route: 042
     Dates: start: 20210811
  4. LEUCOVORIN [Suspect]
     Active Substance: LEUCOVORIN
     Indication: Colorectal cancer metastatic
     Dosage: 715.2 MG, EVERY 2 WEEKS
     Route: 042
     Dates: start: 20210811
  5. ENCORAFENIB [Suspect]
     Active Substance: ENCORAFENIB
     Indication: Colorectal cancer metastatic
     Dosage: 300 MG, ONCE DAILY (28-DAY CYCLE)
     Route: 048
     Dates: start: 20210811
  6. CETUXIMAB [Suspect]
     Active Substance: CETUXIMAB
     Indication: Colorectal cancer metastatic
     Dosage: 894 MG, EVERY 2 WEEKS
     Route: 042
     Dates: start: 20210811

REACTIONS (1)
  - Enteritis [Recovered/Resolved]

NARRATIVE: CASE EVENT DATE: 20211011
